FAERS Safety Report 10014091 (Version 1)
Quarter: 2014Q1

REPORT INFORMATION
  Report Type: Spontaneous
  Country: DE (occurrence: DE)
  Receive Date: 20140317
  Receipt Date: 20140317
  Transmission Date: 20141002
  Serious: Yes (Hospitalization)
  Sender: FDA-Public Use
  Company Number: DE-BIOGENIDEC-2014BI021051

PATIENT
  Age: 52 Year
  Sex: Male

DRUGS (3)
  1. AVONEX [Suspect]
     Indication: MULTIPLE SCLEROSIS
     Route: 030
     Dates: start: 20131101
  2. DILITIAZEM [Concomitant]
     Indication: HYPERTENSION
     Route: 048
  3. IBU 600 [Concomitant]
     Indication: PROPHYLAXIS
     Route: 048
     Dates: start: 20131101

REACTIONS (3)
  - Pulmonary venous thrombosis [Not Recovered/Not Resolved]
  - Venous thrombosis limb [Not Recovered/Not Resolved]
  - Venous thrombosis [Not Recovered/Not Resolved]
